FAERS Safety Report 18141426 (Version 1)
Quarter: 2020Q3

REPORT INFORMATION
  Report Type: Other
  Country: CA (occurrence: CA)
  Receive Date: 20200812
  Receipt Date: 20200812
  Transmission Date: 20201103
  Serious: Yes (Hospitalization, Other)
  Sender: FDA-Public Use
  Company Number: CA-ACCORD-194808

PATIENT
  Age: 8 Year
  Sex: Male

DRUGS (4)
  1. DACLIZUMAB [Concomitant]
     Active Substance: DACLIZUMAB
     Indication: RENAL TRANSPLANT
  2. PREDNISONE. [Concomitant]
     Active Substance: PREDNISONE
     Indication: RENAL TRANSPLANT
  3. MYCOPHENOLIC ACID. [Concomitant]
     Active Substance: MYCOPHENOLIC ACID
     Indication: RENAL TRANSPLANT
  4. TACROLIMUS. [Suspect]
     Active Substance: TACROLIMUS
     Indication: RENAL TRANSPLANT

REACTIONS (1)
  - Toxic encephalopathy [Recovered/Resolved]
